FAERS Safety Report 6137702-5 (Version None)
Quarter: 2009Q1

REPORT INFORMATION
  Report Type: 
  Country: None (occurrence: None)
  Receive Date: 20090326
  Receipt Date: 20090313
  Transmission Date: 20090719
  Serious: Yes (Death)
  Sender: FDA-Public Use
  Company Number: 2009000784

PATIENT
  Sex: Male

DRUGS (2)
  1. TARCEVA [Suspect]
     Indication: LUNG NEOPLASM MALIGNANT
     Dosage: (150 MG, QD), ORAL
     Route: 048
  2. NON-STEROIDAL ANTI-INFLAMMATORIES [Concomitant]

REACTIONS (2)
  - HAEMORRHAGE [None]
  - PROTHROMBIN LEVEL DECREASED [None]
